FAERS Safety Report 11497489 (Version 3)
Quarter: 2015Q4

REPORT INFORMATION
  Report Type: Spontaneous
  Country: US (occurrence: US)
  Receive Date: 20150911
  Receipt Date: 20151023
  Transmission Date: 20160304
  Serious: Yes (Hospitalization)
  Sender: FDA-Public Use
  Company Number: US-DSJP-DSU-2015-117876

PATIENT

DRUGS (1)
  1. BENICAR HCT [Suspect]
     Active Substance: HYDROCHLOROTHIAZIDE\OLMESARTAN MEDOXOMIL
     Indication: HYPERTENSION
     Dosage: 40-12.5 MG, QD
     Route: 048
     Dates: start: 2012, end: 2014

REACTIONS (19)
  - Faeces discoloured [Recovering/Resolving]
  - Malabsorption [Unknown]
  - Hypokalaemia [Unknown]
  - Hyponatraemia [Unknown]
  - Haemorrhoids [Unknown]
  - Chronic kidney disease [Unknown]
  - Duodenal polyp [Unknown]
  - Renal failure [Recovering/Resolving]
  - Ascites [Unknown]
  - Diarrhoea haemorrhagic [Recovered/Resolved]
  - Acute prerenal failure [Unknown]
  - Nephrolithiasis [Unknown]
  - Crohn^s disease [Recovering/Resolving]
  - Haematemesis [Recovering/Resolving]
  - Acute kidney injury [Unknown]
  - Abdominal pain [Recovering/Resolving]
  - Gastrooesophageal reflux disease [Unknown]
  - Inflammatory bowel disease [Unknown]
  - Diverticulum [Unknown]

NARRATIVE: CASE EVENT DATE: 2013
